FAERS Safety Report 4483484-2 (Version None)
Quarter: 2004Q4

REPORT INFORMATION
  Report Type: 
  Country: None (occurrence: None)
  Receive Date: 20041020
  Receipt Date: 20041007
  Transmission Date: 20050328
  Serious: Yes (Death)
  Sender: FDA-Public Use
  Company Number: 2004076135

PATIENT
  Sex: Female

DRUGS (2)
  1. GEODON [Suspect]
     Indication: ILL-DEFINED DISORDER
     Dosage: 20 MG, INTRAMUSCULAR
     Route: 030
  2. ALL OTHER THERAPEUTIC PRODUCTS (ALL OTHER THERAPEUTIC PRODUCTS) [Concomitant]

REACTIONS (1)
  - CARDIO-RESPIRATORY ARREST [None]
